FAERS Safety Report 16368516 (Version 2)
Quarter: 2019Q3

REPORT INFORMATION
  Report Type: Report from Study
  Country: US (occurrence: US)
  Receive Date: 20190529
  Receipt Date: 20190920
  Transmission Date: 20191004
  Serious: Yes (Death, Hospitalization)
  Sender: FDA-Public Use
  Company Number: US-ACTELION-A-NJ2017-164119

PATIENT
  Age: 60 Year
  Sex: Female

DRUGS (3)
  1. DILTIAZEM. [Concomitant]
     Active Substance: DILTIAZEM
  2. ELIQUIS [Concomitant]
     Active Substance: APIXABAN
  3. OPSUMIT [Suspect]
     Active Substance: MACITENTAN
     Indication: PULMONARY HYPERTENSION
     Dosage: 10 MG, QD
     Route: 048

REACTIONS (7)
  - Anaemia [Unknown]
  - Influenza [Unknown]
  - Transfusion [Unknown]
  - Headache [Unknown]
  - Abdominal pain [Unknown]
  - Chronic obstructive pulmonary disease [Unknown]
  - Death [Fatal]

NARRATIVE: CASE EVENT DATE: 201712
